FAERS Safety Report 5626411-4 (Version None)
Quarter: 2008Q1

REPORT INFORMATION
  Report Type: 
  Country: None (occurrence: None)
  Receive Date: 20080214
  Receipt Date: 20080208
  Transmission Date: 20080703
  Serious: Yes (Hospitalization, Other)
  Sender: FDA-Public Use
  Company Number: JP-ASTRAZENECA-2008AP00544

PATIENT
  Age: 10 Month
  Sex: Male
  Weight: 9 kg

DRUGS (10)
  1. PULMICORT RESPULES [Suspect]
     Indication: ASTHMA
     Route: 055
     Dates: start: 20071205
  2. MEPTIN [Concomitant]
     Indication: ASTHMA
     Dosage: 1 - 3 TIMES A DAY
     Route: 055
     Dates: start: 20071126
  3. INTAL [Concomitant]
     Indication: ASTHMA
     Dosage: 1 - 3 TIMES A DAY
     Route: 055
     Dates: start: 20071126
  4. ONON DRYSYRUP [Concomitant]
     Indication: ASTHMA
     Route: 048
     Dates: start: 20070704
  5. MUCODYNE [Concomitant]
     Indication: NASOPHARYNGITIS
     Route: 048
     Dates: start: 20071210, end: 20071216
  6. ZESULAN [Concomitant]
     Indication: NASOPHARYNGITIS
     Route: 048
     Dates: start: 20071210, end: 20071216
  7. HOKUNALIN:TAPE [Concomitant]
     Indication: NASOPHARYNGITIS
     Route: 003
     Dates: start: 20071210, end: 20071216
  8. LAC-B [Concomitant]
     Indication: DIARRHOEA
     Route: 048
     Dates: start: 20071215, end: 20071221
  9. ASVERIN [Concomitant]
     Indication: NASOPHARYNGITIS
     Route: 048
     Dates: start: 20071210, end: 20071216
  10. PERIACTIN [Concomitant]
     Indication: NASOPHARYNGITIS
     Route: 048
     Dates: start: 20071210, end: 20071216

REACTIONS (3)
  - CYANOSIS [None]
  - DIARRHOEA [None]
  - NASOPHARYNGITIS [None]
